FAERS Safety Report 17305338 (Version 2)
Quarter: 2020Q2

REPORT INFORMATION
  Report Type: Spontaneous
  Country: NL (occurrence: NL)
  Receive Date: 20200123
  Receipt Date: 20200627
  Transmission Date: 20200713
  Serious: Yes (Other)
  Sender: FDA-Public Use
  Company Number: NL-AMGEN-NLDSP2020007584

PATIENT
  Age: 55 Year
  Sex: Male
  Weight: 68 kg

DRUGS (4)
  1. DEXAMETHASONE. [Concomitant]
     Active Substance: DEXAMETHASONE
  2. NPLATE [Suspect]
     Active Substance: ROMIPLOSTIM
     Dosage: 11 MICROGRAM/KILOGRAM
     Route: 058
     Dates: start: 2015
  3. NPLATE [Suspect]
     Active Substance: ROMIPLOSTIM
     Indication: IMMUNE THROMBOCYTOPENIA
     Dosage: 10 MICROGRAM/KILOGRAM
     Route: 058
     Dates: start: 2012
  4. NPLATE [Suspect]
     Active Substance: ROMIPLOSTIM
     Dosage: 10 MICROGRAM/KILOGRAM
     Route: 058
     Dates: start: 20191217, end: 20200103

REACTIONS (4)
  - Leukocytosis [Recovered/Resolved]
  - Drug ineffective [Unknown]
  - Subdural haematoma [Unknown]
  - Chronic myeloid leukaemia [Not Recovered/Not Resolved]

NARRATIVE: CASE EVENT DATE: 2012
